FAERS Safety Report 10498800 (Version 2)
Quarter: 2014Q4

REPORT INFORMATION
  Report Type: Report from Study
  Country: US (occurrence: US)
  Receive Date: 20141006
  Receipt Date: 20141201
  Transmission Date: 20150528
  Serious: No
  Sender: FDA-Public Use
  Company Number: US-VERTEX PHARMACEUTICALS-2014-004142

PATIENT
  Sex: Male

DRUGS (1)
  1. IVACAFTOR [Suspect]
     Active Substance: IVACAFTOR
     Indication: CYSTIC FIBROSIS
     Dosage: UNK
     Route: 048
     Dates: start: 20140620

REACTIONS (3)
  - Nasopharyngitis [Recovered/Resolved]
  - Forced expiratory volume decreased [Unknown]
  - Malaise [Unknown]

NARRATIVE: CASE EVENT DATE: 2014
